FAERS Safety Report 5520006-9 (Version None)
Quarter: 2007Q4

REPORT INFORMATION
  Report Type: 
  Country: None (occurrence: None)
  Receive Date: 20071116
  Receipt Date: 20071108
  Transmission Date: 20080405
  Serious: Yes (Other)
  Sender: FDA-Public Use
  Company Number: CA-ASTRAZENECA-2007UW26142

PATIENT
  Age: 61 Year
  Sex: Female

DRUGS (13)
  1. XYLOCAINE [Suspect]
  2. ACTONEL [Concomitant]
  3. APO-FOLIC [Concomitant]
  4. ARTHROTEC [Concomitant]
  5. CALCIUM + VITAMIN D [Concomitant]
  6. CARBOCAL D [Concomitant]
  7. CYCLOBENZAPRINE HCL [Concomitant]
  8. FLOMAX [Concomitant]
  9. GLUCOSAMINE [Concomitant]
  10. METHOTREXATE [Concomitant]
  11. MULTI-VITAMIN [Concomitant]
  12. PANTALOC [Concomitant]
  13. SALAGEN [Concomitant]

REACTIONS (7)
  - BLOOD PRESSURE INCREASED [None]
  - BRUXISM [None]
  - DYSKINESIA [None]
  - DYSPEPSIA [None]
  - ERYTHEMA [None]
  - LOSS OF CONSCIOUSNESS [None]
  - MUSCLE CONTRACTIONS INVOLUNTARY [None]
